FAERS Safety Report 9164607 (Version 1)
Quarter: 2013Q1

REPORT INFORMATION
  Report Type: Report from Study
  Country: CA (occurrence: CA)
  Receive Date: 20130315
  Receipt Date: 20130315
  Transmission Date: 20140127
  Serious: Yes (Hospitalization, Other)
  Sender: FDA-Public Use
  Company Number: CA-JNJFOC-20130303254

PATIENT
  Age: 51 None
  Sex: Female
  Weight: 64 kg

DRUGS (17)
  1. REMICADE [Suspect]
     Indication: ARTHRITIS ENTEROPATHIC
     Dosage: PATIENT HAD 44 INFLIXIMAB DOSES
     Route: 042
     Dates: start: 20100505
  2. REMICADE [Suspect]
     Indication: ARTHRITIS ENTEROPATHIC
     Dosage: PATIENT HAD 44 INFLIXIMAB DOSES
     Route: 042
     Dates: start: 20130228
  3. METHOTREXATE [Concomitant]
     Indication: ARTHRITIS ENTEROPATHIC
     Route: 058
     Dates: start: 20101209
  4. DEPOMEDROL [Concomitant]
     Indication: ARTHRITIS ENTEROPATHIC
     Dosage: ONE TIME ONLY
     Route: 058
     Dates: start: 20101209, end: 20101209
  5. ONDANSETRON [Concomitant]
     Indication: NAUSEA
     Route: 048
     Dates: start: 201004
  6. FOLIC ACID [Concomitant]
     Indication: ROUTINE HEALTH MAINTENANCE
     Route: 048
     Dates: start: 20101209
  7. VITAMIN B12 [Concomitant]
     Indication: ROUTINE HEALTH MAINTENANCE
     Route: 058
     Dates: start: 20101209
  8. DILAUDID [Concomitant]
     Indication: ARTHRALGIA
     Route: 048
  9. NEXIUM [Concomitant]
     Indication: GASTROINTESTINAL DISORDER THERAPY
     Route: 048
     Dates: start: 2008
  10. REMERON [Concomitant]
     Indication: INCREASED APPETITE
     Route: 048
     Dates: start: 2008
  11. DOMPERIDONE [Concomitant]
     Indication: CROHN^S DISEASE
     Route: 048
     Dates: start: 2008
  12. LYRICA [Concomitant]
     Indication: CROHN^S DISEASE
     Route: 048
     Dates: start: 2008
  13. TEMAZEPAM [Concomitant]
     Indication: SLEEP DISORDER THERAPY
     Route: 048
     Dates: start: 2009
  14. HYDROMORPHONE [Concomitant]
     Indication: PAIN
     Route: 048
     Dates: start: 2006
  15. ZOFRAN [Concomitant]
     Indication: NAUSEA
     Route: 048
     Dates: start: 2009
  16. LACTULOSE [Concomitant]
     Indication: GASTROINTESTINAL DISORDER THERAPY
     Route: 048
     Dates: start: 2009
  17. EFFEXOR [Concomitant]
     Indication: DEPRESSION
     Route: 048
     Dates: start: 20100410

REACTIONS (6)
  - Pneumonia [Not Recovered/Not Resolved]
  - Intervertebral disc degeneration [Not Recovered/Not Resolved]
  - Fistula [Recovered/Resolved]
  - Pharyngitis [Recovered/Resolved]
  - Sinusitis [Recovered/Resolved]
  - Ear infection [Recovered/Resolved]
